FAERS Safety Report 23736589 (Version 1)
Quarter: 2024Q2

REPORT INFORMATION
  Report Type: Spontaneous
  Country: KR (occurrence: None)
  Receive Date: 20240412
  Receipt Date: 20240412
  Transmission Date: 20240715
  Serious: Yes (Hospitalization)
  Sender: FDA-Public Use
  Company Number: KR-ROCHE-3542490

PATIENT
  Age: 82 Year
  Sex: Female

DRUGS (3)
  1. TECENTRIQ [Suspect]
     Active Substance: ATEZOLIZUMAB
     Indication: Myelopathy
     Route: 065
     Dates: start: 20211008, end: 20211008
  2. ETOPOSIDE [Suspect]
     Active Substance: ETOPOSIDE
     Indication: Myelopathy
     Route: 065
     Dates: start: 20211008
  3. CARBOPLATIN [Suspect]
     Active Substance: CARBOPLATIN
     Indication: Myelopathy
     Route: 065
     Dates: start: 20211008, end: 20211008

REACTIONS (1)
  - Pancytopenia [Recovered/Resolved]

NARRATIVE: CASE EVENT DATE: 20211016
